FAERS Safety Report 20692800 (Version 1)
Quarter: 2022Q2

REPORT INFORMATION
  Report Type: Spontaneous
  Country: US (occurrence: None)
  Receive Date: 20220406
  Receipt Date: 20220406
  Transmission Date: 20220721
  Serious: No
  Sender: FDA-Public Use
  Company Number: None

PATIENT
  Age: 35 Year
  Sex: Female

DRUGS (1)
  1. AMBRISENTAN [Suspect]
     Active Substance: AMBRISENTAN
     Indication: Pulmonary arterial hypertension
     Dosage: FREQUENCY : DAILY;?
     Route: 048
     Dates: start: 20220204, end: 20220315

REACTIONS (5)
  - Rash [None]
  - Swelling [None]
  - Pruritus [None]
  - Therapeutic product effect decreased [None]
  - Product dose omission issue [None]

NARRATIVE: CASE EVENT DATE: 20220311
